FAERS Safety Report 8806665 (Version 1)
Quarter: 2012Q4

REPORT INFORMATION
  Report Type: 
  Country: US (occurrence: US)
  Receive Date: 20120925
  Receipt Date: 20120925
  Transmission Date: 20130627
  Serious: Yes (Hospitalization, Other)
  Sender: FDA-Public Use
  Company Number: US-009507513-1206USA04393

PATIENT

DRUGS (7)
  1. FOSAMAX [Suspect]
     Indication: OSTEOPENIA
     Dosage: 70 mg, qw
     Route: 048
     Dates: start: 200111, end: 20110610
  2. FOSAMAX [Suspect]
     Dosage: 10 mg, qd
     Route: 048
  3. FOSAMAX [Suspect]
     Indication: OSTEOPENIA
     Dosage: 70 mg, UNK
     Route: 048
     Dates: start: 200803
  4. ALENDRONATE SODIUM [Suspect]
     Dosage: 70 mg, UNK
  5. CITRICAL [Concomitant]
     Dosage: 500 mg, qd
     Dates: start: 2000
  6. VITAMIN D (UNSPECIFIED) [Concomitant]
     Dosage: 200 mg, qd
     Dates: start: 2000
  7. TOPROL XL TABLETS [Concomitant]
     Dosage: 50 mg, qd

REACTIONS (47)
  - Open reduction of fracture [Unknown]
  - Open reduction of fracture [Unknown]
  - Ultrasound Doppler [Unknown]
  - X-ray [Unknown]
  - Metabolic function test [Unknown]
  - Cerebrovascular accident [Unknown]
  - Tonsillectomy [Unknown]
  - Coronary artery bypass [Unknown]
  - Haemorrhoid operation [Unknown]
  - Adenoidectomy [Unknown]
  - Cataract operation [Unknown]
  - Computerised tomogram [Unknown]
  - Cholecystectomy [Unknown]
  - Oestrogen deficiency [Unknown]
  - Blood pressure increased [Unknown]
  - Lacunar infarction [Unknown]
  - Femur fracture [Unknown]
  - Femur fracture [Unknown]
  - Ankle fracture [Unknown]
  - Calcium deficiency [Unknown]
  - Low turnover osteopathy [Unknown]
  - Adverse event [Unknown]
  - Adverse event [Unknown]
  - Rhinitis [Unknown]
  - Arthritis [Unknown]
  - Asthma [Unknown]
  - Bronchospasm [Recovering/Resolving]
  - Blood potassium decreased [Unknown]
  - Mastoiditis [Unknown]
  - Cerebral small vessel ischaemic disease [Unknown]
  - Osteoporosis [Unknown]
  - Coagulopathy [Unknown]
  - Unevaluable event [Unknown]
  - Rib fracture [Unknown]
  - Anaemia postoperative [Unknown]
  - Fall [Unknown]
  - Diverticulum [Unknown]
  - Anal sphincter atony [Unknown]
  - Anal pruritus [Unknown]
  - Haematuria [Unknown]
  - Carotid artery stenosis [Unknown]
  - Arteriosclerosis [Unknown]
  - Device breakage [Unknown]
  - Urinary tract infection [Unknown]
  - Pain in extremity [Unknown]
  - Back pain [Unknown]
  - Oedema peripheral [Unknown]
